FAERS Safety Report 7473955-9 (Version None)
Quarter: 2011Q2

REPORT INFORMATION
  Report Type: 
  Country: None (occurrence: None)
  Receive Date: 20110511
  Receipt Date: 20090930
  Transmission Date: 20111010
  Serious: Yes (Other)
  Sender: FDA-Public Use
  Company Number: US-BAYER-200934515NA

PATIENT
  Age: 54 Year
  Sex: Male
  Weight: 88.435 kg

DRUGS (14)
  1. ARAVA [Concomitant]
     Indication: ARTHRITIS
     Dosage: UNK
     Dates: start: 19931001
  2. ACETYLSALICYLIC ACID SRT [Concomitant]
     Dosage: 81 MG, QD
  3. NORVASC [Concomitant]
     Dosage: 5 MG, QD
  4. PROPOXYPHENE HYDROCHLORIDE [Concomitant]
     Dosage: UNK UNK, QD
  5. COZAAR [Concomitant]
     Dosage: 100 MG, QD
  6. LEVOXYL [Concomitant]
     Dosage: 150 ?G, UNK
     Dates: start: 19930101
  7. ATENOLOL [Concomitant]
     Dosage: 25 MG, QD
  8. TRASYLOL [Suspect]
     Indication: CORONARY ARTERY BYPASS
     Dosage: UNK
     Route: 042
  9. XANAX [Concomitant]
     Indication: SLEEP DISORDER THERAPY
     Dosage: 0.25 MG, QD, AT BEDTIME
     Dates: start: 19960401
  10. INSULIN [INSULIN] [Concomitant]
     Dosage: UNK
     Dates: start: 19620701
  11. LISINOPRIL [Concomitant]
     Dosage: UNK
     Dates: start: 20000201, end: 20041201
  12. XALATAN [Concomitant]
  13. LIPITOR [Concomitant]
     Dosage: 40 MG, QD
  14. LASIX [Concomitant]
     Dosage: 60 MG, QD

REACTIONS (11)
  - RENAL IMPAIRMENT [None]
  - RENAL INJURY [None]
  - ANXIETY [None]
  - STRESS [None]
  - UNEVALUABLE EVENT [None]
  - FEAR [None]
  - PAIN [None]
  - RENAL FAILURE [None]
  - INJURY [None]
  - EMOTIONAL DISTRESS [None]
  - DEPRESSION [None]
